FAERS Safety Report 6371309-X (Version None)
Quarter: 2009Q3

REPORT INFORMATION
  Report Type: 
  Country: None (occurrence: None)
  Receive Date: 20090918
  Receipt Date: 20090908
  Transmission Date: 20100115
  Serious: Yes (Hospitalization)
  Sender: FDA-Public Use
  Company Number: CIP09002556

PATIENT
  Age: 77 Year
  Sex: Female

DRUGS (1)
  1. FURADANTIN [Suspect]
     Indication: CYSTITIS
     Dosage: 50 MG 4 TIMES DAILY, ORAL
     Route: 048
     Dates: start: 20070101, end: 20090625

REACTIONS (2)
  - ANXIETY [None]
  - TENDERNESS [None]
